FAERS Safety Report 10095675 (Version 2)
Quarter: 2014Q2

REPORT INFORMATION
  Report Type: Spontaneous
  Country: US (occurrence: US)
  Receive Date: 20140422
  Receipt Date: 20140422
  Transmission Date: 20141212
  Serious: No
  Sender: FDA-Public Use
  Company Number: US-GILEAD-2012-0064634

PATIENT
  Sex: Female

DRUGS (2)
  1. LETAIRIS [Suspect]
     Indication: COR PULMONALE CHRONIC
     Dosage: 5 MG, QD
     Route: 048
     Dates: start: 20120321
  2. REMODULIN [Concomitant]

REACTIONS (4)
  - Erythema [Unknown]
  - Pain [Unknown]
  - Device dislocation [Recovered/Resolved]
  - Local swelling [Unknown]
